FAERS Safety Report 6638559-6 (Version None)
Quarter: 2010Q1

REPORT INFORMATION
  Report Type: 
  Country: None (occurrence: None)
  Receive Date: 20100317
  Receipt Date: 20100308
  Transmission Date: 20100710
  Serious: Yes (Other)
  Sender: FDA-Public Use
  Company Number: US-BRISTOL-MYERS SQUIBB COMPANY-15007412

PATIENT
  Age: 9 Year
  Sex: Female

DRUGS (3)
  1. ABILIFY [Suspect]
     Indication: BIPOLAR DISORDER
     Dosage: THERAPY STARTED 6 MONTHS AGO.
  2. TRAZODONE HCL [Concomitant]
  3. DEPAKOTE [Concomitant]

REACTIONS (1)
  - COELIAC DISEASE [None]
